FAERS Safety Report 5762478-0 (Version None)
Quarter: 2008Q2

REPORT INFORMATION
  Report Type: 
  Country: None (occurrence: None)
  Receive Date: 20080609
  Receipt Date: 20080604
  Transmission Date: 20081010
  Serious: Yes (Other)
  Sender: FDA-Public Use
  Company Number: DE-WYE-G01634108

PATIENT
  Sex: Female

DRUGS (1)
  1. VENLAFAXINE HCL [Suspect]
     Dosage: 75 MG (FREQUENCY UNKNOWN)
     Route: 048

REACTIONS (2)
  - APLASTIC ANAEMIA [None]
  - PANCREATIC CARCINOMA [None]
